FAERS Safety Report 24443587 (Version 5)
Quarter: 2025Q4

REPORT INFORMATION
  Report Type: Spontaneous
  Country: EU (occurrence: EU)
  Receive Date: 20241016
  Receipt Date: 20251007
  Transmission Date: 20260118
  Serious: Yes (Death, Other)
  Sender: TAKEDA
  Company Number: EU-BEH-2024172163

PATIENT
  Age: 51 Year
  Sex: Female
  Weight: 37.1 kg

DRUGS (20)
  1. HUMAN IMMUNOGLOBULIN G [Suspect]
     Active Substance: HUMAN IMMUNOGLOBULIN G
     Indication: Transplant rejection
     Dosage: UNK
  2. ALBUTEIN [Suspect]
     Active Substance: ALBUMIN HUMAN
     Indication: Product used for unknown indication
     Dosage: 75 INTERNATIONAL UNIT
  3. ALBUTEIN [Suspect]
     Active Substance: ALBUMIN HUMAN
     Dosage: 50 INTERNATIONAL UNIT
  4. ALBUTEIN [Suspect]
     Active Substance: ALBUMIN HUMAN
     Dosage: 50 INTERNATIONAL UNIT
  5. ALBUTEIN [Suspect]
     Active Substance: ALBUMIN HUMAN
     Dosage: 75 INTERNATIONAL UNIT
  6. ALBUTEIN [Suspect]
     Active Substance: ALBUMIN HUMAN
     Dosage: 50 INTERNATIONAL UNIT
  7. BERINERT [Suspect]
     Active Substance: HUMAN C1-ESTERASE INHIBITOR
     Indication: Transplant rejection
     Dosage: 20 INTERNATIONAL UNIT PER KILOGRAM
     Dates: start: 20240426, end: 20240910
  8. BERINERT [Suspect]
     Active Substance: HUMAN C1-ESTERASE INHIBITOR
     Indication: Heart transplant rejection
     Dosage: UNK
  9. BERINERT [Suspect]
     Active Substance: HUMAN C1-ESTERASE INHIBITOR
     Dosage: UNK
     Dates: start: 20240428, end: 20240502
  10. BERINERT [Suspect]
     Active Substance: HUMAN C1-ESTERASE INHIBITOR
     Dosage: 1000 INTERNATIONAL UNIT
  11. BERINERT [Suspect]
     Active Substance: HUMAN C1-ESTERASE INHIBITOR
     Dosage: 1000 INTERNATIONAL UNIT
  12. BERINERT [Suspect]
     Active Substance: HUMAN C1-ESTERASE INHIBITOR
     Dosage: 500 INTERNATIONAL UNIT
  13. BERINERT [Suspect]
     Active Substance: HUMAN C1-ESTERASE INHIBITOR
     Dosage: 20 INTERNATIONAL UNIT PER KILOGRAM
  14. PROGRAF [Concomitant]
     Active Substance: TACROLIMUS
     Dosage: 12 MILLIGRAM
     Dates: start: 20240213, end: 20240915
  15. BELATACEPT [Concomitant]
     Active Substance: BELATACEPT
     Dosage: UNK
     Dates: start: 20240909, end: 20240909
  16. ALBUMIN HUMAN [Concomitant]
     Active Substance: ALBUMIN HUMAN
     Indication: Plasmapheresis
     Dosage: UNK
  17. MYFORTIC [Concomitant]
     Active Substance: MYCOPHENOLATE SODIUM
     Dosage: UNK
     Dates: start: 20240802, end: 20240915
  18. CERTICAN [Concomitant]
     Active Substance: EVEROLIMUS
     Dosage: 1 MILLIGRAM
  19. RITUXIMAB [Concomitant]
     Active Substance: RITUXIMAB
     Dosage: UNK
  20. TOLODODEKIN ALFA [Concomitant]
     Active Substance: TOLODODEKIN ALFA
     Indication: Off label use
     Dosage: UNK
     Dates: start: 20240729, end: 20240729

REACTIONS (7)
  - Cardiogenic shock [Fatal]
  - Transplant dysfunction [Unknown]
  - Transplant rejection [Not Recovered/Not Resolved]
  - Urticaria [Recovered/Resolved]
  - Off label use [Unknown]
  - Treatment noncompliance [Unknown]
  - Drug ineffective for unapproved indication [Unknown]

NARRATIVE: CASE EVENT DATE: 20240920
